FAERS Safety Report 9952563 (Version 2)
Quarter: 2014Q1

REPORT INFORMATION
  Report Type: Report from Study
  Country: US (occurrence: US)
  Receive Date: 20140304
  Receipt Date: 20140304
  Transmission Date: 20141002
  Serious: No
  Sender: FDA-Public Use
  Company Number: US-ABBVIE-13P-163-1059768-00

PATIENT
  Age: 47 Year
  Sex: Female
  Weight: 100.33 kg

DRUGS (10)
  1. HUMIRA [Suspect]
     Indication: PSORIASIS
     Dates: start: 20130212, end: 20130212
  2. HUMIRA [Suspect]
     Indication: PSORIATIC ARTHROPATHY
     Dates: start: 20130314
  3. UNKNOWN ALLERGY MEDICATION [Concomitant]
     Indication: HYPERSENSITIVITY
  4. CRESTOR [Concomitant]
     Indication: PRODUCT USED FOR UNKNOWN INDICATION
  5. GLYBURIDE [Concomitant]
     Indication: PRODUCT USED FOR UNKNOWN INDICATION
  6. JANUVIA [Concomitant]
     Indication: PRODUCT USED FOR UNKNOWN INDICATION
  7. LOSARTAN / HYDROCHLOROTHIAZID STADA [Concomitant]
     Indication: PRODUCT USED FOR UNKNOWN INDICATION
  8. METFORMIN [Concomitant]
     Indication: PRODUCT USED FOR UNKNOWN INDICATION
  9. OMEGA 3 [Concomitant]
     Indication: PRODUCT USED FOR UNKNOWN INDICATION
  10. ALOE VERA JUICE [Concomitant]
     Indication: MALABSORPTION

REACTIONS (8)
  - Cough [Unknown]
  - Oropharyngeal pain [Recovered/Resolved]
  - Bronchitis [Unknown]
  - Rash papular [Unknown]
  - Injection site pain [Unknown]
  - Injection site pain [Unknown]
  - Blister [Recovered/Resolved]
  - Back pain [Recovered/Resolved]
